FAERS Safety Report 9280697 (Version 3)
Quarter: 2013Q3

REPORT INFORMATION
  Report Type: Spontaneous
  Country: US (occurrence: US)
  Receive Date: 20130509
  Receipt Date: 20130701
  Transmission Date: 20140515
  Serious: Yes (Other)
  Sender: FDA-Public Use
  Company Number: US-PFIZER INC-2013143064

PATIENT
  Age: 61 Year
  Sex: Female
  Weight: 87.26 kg

DRUGS (15)
  1. NEURONTIN [Suspect]
     Indication: POLYNEUROPATHY
     Dosage: 100 MG, 1X/DAY
     Dates: start: 201304, end: 201304
  2. NEURONTIN [Suspect]
     Dosage: 200 MG, 1X/DAY
     Dates: start: 201304, end: 201304
  3. NEURONTIN [Suspect]
     Dosage: 300 MG, 3X/DAY
     Route: 048
     Dates: start: 20130401, end: 20130505
  4. SYNTHROID [Concomitant]
     Indication: THYROID DISORDER
     Dosage: 150 UG, 1X/DAY
  5. SYNTHROID [Concomitant]
     Dosage: 175 UG, 1X/DAY
     Route: 048
  6. TRAMADOL [Concomitant]
     Indication: OSTEOPOROSIS
     Dosage: 300 MG, 1X/DAY
  7. VESICARE [Concomitant]
     Indication: MICTURITION URGENCY
     Dosage: 5 MG, 1X/DAY
     Route: 048
  8. OMEPRAZOLE [Concomitant]
     Indication: GASTROOESOPHAGEAL REFLUX DISEASE
     Dosage: 40 MG, 2X/DAY
     Route: 048
  9. EVISTA [Concomitant]
     Indication: HYSTERECTOMY
     Dosage: 60 MG, 1X/DAY
  10. CITALOPRAM HYDROBROMIDE [Concomitant]
     Indication: DEPRESSION
     Dosage: 40 MG, 1X/DAY
     Route: 048
  11. LORATADINE [Concomitant]
     Indication: HYPERSENSITIVITY
     Dosage: 10 MG, 1X/DAY
  12. KLONOPIN [Concomitant]
     Indication: FEELING JITTERY
     Dosage: 1 MG, 2X/DAY
     Dates: start: 201304
  13. KLONOPIN [Concomitant]
     Dosage: ONE TABLET PER DAY AT BEDTIME
  14. CALCIUM WITH VITAMIN D [Concomitant]
     Indication: SUPPLEMENTATION THERAPY
     Dosage: 1200 MG, 1X/DAY (TAKING TWO 600MG TABLETS TOGETHER)
  15. CALCIUM WITH VITAMIN D [Concomitant]
     Dosage: CALCIUM CARBONATE 600 MG- D 200 MG UNIT TABS, TWO TABS ONCE DAILY IN PM

REACTIONS (9)
  - Hypersensitivity [Recovering/Resolving]
  - Pruritus [Recovered/Resolved]
  - Intervertebral disc degeneration [Unknown]
  - Blood glucose decreased [Unknown]
  - Nervousness [Recovered/Resolved]
  - Feeling jittery [Recovered/Resolved]
  - Headache [Recovered/Resolved]
  - Neck pain [Unknown]
  - Radiculopathy [Unknown]
